FAERS Safety Report 13120828 (Version 2)
Quarter: 2017Q1

REPORT INFORMATION
  Report Type: Report from Study
  Country: TW (occurrence: TW)
  Receive Date: 20170117
  Receipt Date: 20170123
  Transmission Date: 20170428
  Serious: Yes (Hospitalization)
  Sender: FDA-Public Use
  Company Number: TW-ROCHE-1877912

PATIENT
  Age: 67 Year
  Sex: Female
  Weight: 53 kg

DRUGS (7)
  1. BEVACIZUMAB [Suspect]
     Active Substance: BEVACIZUMAB
     Indication: BREAST CANCER METASTATIC
     Dosage: DATE OF LAST DOSE PRIOER TO SAE: 28/DEC/2016
     Route: 042
     Dates: start: 20161228, end: 20170118
  2. CISPLATIN. [Suspect]
     Active Substance: CISPLATIN
     Indication: BREAST CANCER METASTATIC
     Dosage: DATE OF LAST DOSE PRIOER TO SAE: 29/DEC/2016
     Route: 042
     Dates: start: 20161229, end: 20170118
  3. FAMOTIDINE. [Concomitant]
     Active Substance: FAMOTIDINE
     Route: 065
     Dates: start: 20170102
  4. LERCANIDIPINE [Concomitant]
     Active Substance: LERCANIDIPINE
     Route: 065
     Dates: start: 20161011
  5. ETOPOSIDE. [Suspect]
     Active Substance: ETOPOSIDE
     Indication: BREAST CANCER METASTATIC
     Dosage: DATE OF LAST DOSE PRIOER TO SAE: 31/DEC/2016
     Route: 042
     Dates: start: 20161229, end: 20170118
  6. BISOPROLOL FUMARATE. [Concomitant]
     Active Substance: BISOPROLOL FUMARATE
     Route: 065
     Dates: start: 20161011
  7. LENOGRASTIM [Concomitant]
     Active Substance: LENOGRASTIM
     Dosage: FOR 3 DAYS
     Route: 065

REACTIONS (2)
  - Nephropathy toxic [Recovering/Resolving]
  - Neutropenia [Recovered/Resolved]

NARRATIVE: CASE EVENT DATE: 20170109
